FAERS Safety Report 22285744 (Version 7)
Quarter: 2024Q3

REPORT INFORMATION
  Report Type: Spontaneous
  Country: US (occurrence: US)
  Receive Date: 20230504
  Receipt Date: 20240710
  Transmission Date: 20241017
  Serious: Yes (Hospitalization, Other)
  Sender: BRISTOL MYERS SQUIBB
  Company Number: US-BRISTOL-MYERS SQUIBB COMPANY-2023-061999

PATIENT
  Age: 83 Year
  Sex: Male

DRUGS (4)
  1. LENALIDOMIDE [Suspect]
     Active Substance: LENALIDOMIDE
     Indication: Plasma cell myeloma in remission
     Dosage: TAKE 1 CAPSULE BY MOUTH DAILY?TAKE 1 CAPSULE BY MOUTH EVERY DAY FOR 3 WEEKS ON FOLLOWED BY 1 WEEK OF
     Route: 048
     Dates: start: 20220512
  2. LENALIDOMIDE [Suspect]
     Active Substance: LENALIDOMIDE
     Dosage: TAKE 1 CAPSULE BY MOUTH EVERY DAY FOR 3 WEEKS FOLLOWED BY 1 WEEK OFF
     Route: 048
     Dates: start: 20230512
  3. LENALIDOMIDE [Suspect]
     Active Substance: LENALIDOMIDE
     Dosage: TAKE 1 CAPSULE BY MOUTH EVERY DAY FOR 3 WEEKS FOLLOWED BY 1 WEEK OFF
     Route: 048
  4. LENALIDOMIDE [Suspect]
     Active Substance: LENALIDOMIDE
     Route: 048

REACTIONS (4)
  - Gallbladder disorder [Not Recovered/Not Resolved]
  - Arthropathy [Unknown]
  - Diarrhoea [Not Recovered/Not Resolved]
  - Product availability issue [Unknown]
